FAERS Safety Report 9423570 (Version 4)
Quarter: 2013Q4

REPORT INFORMATION
  Report Type: Report from Study
  Country: JP (occurrence: JP)
  Receive Date: 20130726
  Receipt Date: 20131223
  Transmission Date: 20140711
  Serious: Yes (Hospitalization)
  Sender: FDA-Public Use
  Company Number: JP-GLAXOSMITHKLINE-B0910303A

PATIENT
  Age: 54 Year
  Sex: Male
  Weight: 66 kg

DRUGS (4)
  1. VOTRIENT 200MG [Suspect]
     Indication: LIPOSARCOMA
     Dosage: 600MG PER DAY
     Route: 048
     Dates: start: 20130416, end: 20130610
  2. VOTRIENT 200MG [Suspect]
     Indication: LIPOSARCOMA
     Dosage: 800MG PER DAY
     Route: 048
     Dates: start: 20130611, end: 20130624
  3. VOTRIENT 200MG [Suspect]
     Indication: LIPOSARCOMA
     Dosage: 600MG PER DAY
     Route: 048
     Dates: start: 20130625, end: 20130706
  4. ALLOPURINOL [Concomitant]
     Indication: HYPERURICAEMIA
     Dosage: 200MG PER DAY
     Route: 048

REACTIONS (3)
  - Retinal detachment [Recovered/Resolved with Sequelae]
  - Diarrhoea [Recovered/Resolved]
  - Hypertension [Recovered/Resolved]
